FAERS Safety Report 26127825 (Version 1)
Quarter: 2025Q4

REPORT INFORMATION
  Report Type: Spontaneous
  Country: US (occurrence: US)
  Receive Date: 20251206
  Receipt Date: 20251206
  Transmission Date: 20260117
  Serious: Yes (Death, Other)
  Sender: AMGEN
  Company Number: US-AMGEN-USASP2025236742

PATIENT
  Age: 23 Year
  Sex: Female

DRUGS (6)
  1. FILGRASTIM [Suspect]
     Active Substance: FILGRASTIM
     Indication: Acute myeloid leukaemia
     Dosage: 5 MICROGRAM/KILOGRAM (ON DAYS 1 TO 5)
     Route: 058
  2. PEGFILGRASTIM [Suspect]
     Active Substance: PEGFILGRASTIM
     Indication: Acute myeloid leukaemia
     Dosage: 6 MILLIGRAM (A SINGLE INJECTION ON DAY 6 OF EACH CYCLE)
     Route: 058
  3. FLUDARABINE [Concomitant]
     Active Substance: FLUDARABINE PHOSPHATE
     Indication: Acute myeloid leukaemia
     Dosage: 30 MILLIGRAM/SQ. METER, QD (ON DAYS 2-6 FOR CYCLE 1 AND 2)
     Route: 065
  4. CYTARABINE [Concomitant]
     Active Substance: CYTARABINE
     Indication: Acute myeloid leukaemia
     Dosage: UNK UNK, QD (MILLIGRAM GRAM PER SQUARE METRE (ON DAYS 2-6 FOR CYCLE 1 AND 2)
     Route: 065
  5. IDARUBICIN [Concomitant]
     Active Substance: IDARUBICIN
     Indication: Acute myeloid leukaemia
     Dosage: 8 MILLIGRAM/SQ. METER, QD (ON DAYS 4-6 FOR CYCLE 1 AND 2)
     Route: 065
  6. VENETOCLAX [Concomitant]
     Active Substance: VENETOCLAX
     Indication: Acute myeloid leukaemia
     Dosage: 60 MILLIGRAM (RAMP-UP DOSING OVER DAYS 1 TO 7, ON DAY 1)
     Route: 065

REACTIONS (1)
  - Acute myeloid leukaemia [Fatal]
